FAERS Safety Report 11980401 (Version 1)
Quarter: 2016Q1

REPORT INFORMATION
  Report Type: Spontaneous
  Country: US (occurrence: US)
  Receive Date: 20160129
  Receipt Date: 20160129
  Transmission Date: 20160526
  Serious: No
  Sender: FDA-Public Use
  Company Number: US-PFIZER INC-2016050216

PATIENT
  Age: 61 Year
  Sex: Female
  Weight: 79.38 kg

DRUGS (15)
  1. LISINOPRIL. [Concomitant]
     Active Substance: LISINOPRIL
     Indication: HYPERTENSION
     Dosage: 40 MG, 1X/DAY
     Route: 048
  2. XANAX [Concomitant]
     Active Substance: ALPRAZOLAM
     Indication: NEUROSIS
     Dosage: 2 MG, DAILY AT NIGHT
     Route: 048
  3. LYRICA [Suspect]
     Active Substance: PREGABALIN
     Indication: PAIN IN EXTREMITY
     Dosage: 50 MG, 2X/DAY
     Route: 048
  4. XANAX [Concomitant]
     Active Substance: ALPRAZOLAM
     Indication: ANXIETY
  5. LYRICA [Suspect]
     Active Substance: PREGABALIN
     Indication: POOR PERIPHERAL CIRCULATION
  6. XANAX [Concomitant]
     Active Substance: ALPRAZOLAM
     Indication: DEPRESSION
  7. ZOLOFT [Concomitant]
     Active Substance: SERTRALINE HYDROCHLORIDE
     Indication: ANXIETY
  8. ZOLOFT [Concomitant]
     Active Substance: SERTRALINE HYDROCHLORIDE
     Indication: DEPRESSION
  9. OXYCODONE [Concomitant]
     Active Substance: OXYCODONE
     Indication: PAIN
     Dosage: 30 MG, AS NEEDED, EVERY 6 HOURS AS NEEDED
     Route: 048
  10. VERAPAMIL ER [Concomitant]
     Active Substance: VERAPAMIL HYDROCHLORIDE
     Indication: HYPERTENSION
     Dosage: 240MG 2 TABLETS A DAY
     Route: 048
  11. ZOLOFT [Concomitant]
     Active Substance: SERTRALINE HYDROCHLORIDE
     Indication: NEUROSIS
     Dosage: 20 MG, 1X/DAY
     Route: 048
     Dates: start: 1992
  12. TYLENOL [Concomitant]
     Active Substance: ACETAMINOPHEN
     Indication: PAIN
     Dosage: 500MG TWO TABLETS AS NEEDED
     Route: 048
  13. LYRICA [Suspect]
     Active Substance: PREGABALIN
     Indication: ARTHRALGIA
     Dosage: 50 MG, 1X/DAY
     Route: 048
  14. POLY IRON [Concomitant]
     Active Substance: DIETARY SUPPLEMENT
     Indication: ANAEMIA
     Dosage: 150 MG, 1X/DAY
     Route: 048
  15. RELAFEN [Concomitant]
     Active Substance: NABUMETONE

REACTIONS (4)
  - Somnolence [Recovered/Resolved]
  - Increased appetite [Not Recovered/Not Resolved]
  - Lethargy [Recovered/Resolved]
  - Dry mouth [Not Recovered/Not Resolved]
